FAERS Safety Report 20559112 (Version 3)
Quarter: 2022Q2

REPORT INFORMATION
  Report Type: Spontaneous
  Country: US (occurrence: US)
  Receive Date: 20220307
  Receipt Date: 20220623
  Transmission Date: 20220720
  Serious: No
  Sender: FDA-Public Use
  Company Number: US-PFIZER INC-202200231336

PATIENT
  Age: 58 Year
  Sex: Female

DRUGS (1)
  1. XELJANZ XR [Suspect]
     Active Substance: TOFACITINIB CITRATE
     Indication: Rheumatoid arthritis
     Dosage: 11 MG, 1X/DAY (DAILY)
     Route: 048
     Dates: start: 202112, end: 202205

REACTIONS (5)
  - Headache [Not Recovered/Not Resolved]
  - Intentional product misuse [Unknown]
  - Illness [Unknown]
  - Depressed mood [Unknown]
  - Red blood cell count abnormal [Unknown]
